FAERS Safety Report 16346986 (Version 1)
Quarter: 2019Q2

REPORT INFORMATION
  Report Type: Spontaneous
  Country: US (occurrence: US)
  Receive Date: 20190523
  Receipt Date: 20190523
  Transmission Date: 20190711
  Serious: Yes (Other)
  Sender: FDA-Public Use
  Company Number: US-AUROBINDO-AUR-APL-2019-028148

PATIENT

DRUGS (10)
  1. VALACICLOVIR [Suspect]
     Active Substance: VALACYCLOVIR HYDROCHLORIDE
     Dosage: GRADUALLY INCREASED TO 2G, 3TIMES A DAY
     Route: 065
  2. DORZOLAMIDE;TIMOLOL [Suspect]
     Active Substance: DORZOLAMIDE\TIMOLOL
     Indication: IRITIS
  3. VALACICLOVIR [Suspect]
     Active Substance: VALACYCLOVIR HYDROCHLORIDE
     Indication: VITRITIS
     Dosage: 450 MILLIGRAM, TWO TIMES A DAY
     Route: 065
  4. BRIMONIDINE [Suspect]
     Active Substance: BRIMONIDINE TARTRATE
     Indication: VITRITIS
     Dosage: UNK
     Route: 065
  5. DORZOLAMIDE;TIMOLOL [Suspect]
     Active Substance: DORZOLAMIDE\TIMOLOL
     Indication: VITRITIS
     Dosage: UNK
     Route: 065
  6. PREDNISOLONE. [Suspect]
     Active Substance: PREDNISOLONE
     Indication: VITRITIS
     Dosage: UNK
     Route: 061
  7. PREDNISOLONE. [Suspect]
     Active Substance: PREDNISOLONE
     Indication: IRITIS
  8. BRIMONIDINE [Suspect]
     Active Substance: BRIMONIDINE TARTRATE
     Indication: IRITIS
  9. VALACICLOVIR [Suspect]
     Active Substance: VALACYCLOVIR HYDROCHLORIDE
     Indication: IRITIS
     Dosage: 1 GRAM, TWO TIMES A DAY
     Route: 048
  10. VALACICLOVIR [Suspect]
     Active Substance: VALACYCLOVIR HYDROCHLORIDE
     Dosage: TAPERED BACK
     Route: 065

REACTIONS (4)
  - Normochromic normocytic anaemia [Unknown]
  - Fatigue [Not Recovered/Not Resolved]
  - Necrotising herpetic retinopathy [Unknown]
  - Vasculitis [Recovered/Resolved]
